FAERS Safety Report 24976080 (Version 1)
Quarter: 2025Q1

REPORT INFORMATION
  Report Type: Spontaneous
  Country: PL (occurrence: PL)
  Receive Date: 20250217
  Receipt Date: 20250217
  Transmission Date: 20250409
  Serious: Yes (Other)
  Sender: EXELIXIS
  Company Number: PL-IPSEN Group, Research and Development-2025-02985

PATIENT
  Age: 53 Year
  Sex: Female
  Weight: 101 kg

DRUGS (1)
  1. CABOMETYX [Suspect]
     Active Substance: CABOZANTINIB S-MALATE
     Indication: Renal cancer
     Route: 048
     Dates: start: 20191202

REACTIONS (5)
  - Gait inability [Unknown]
  - Erythema [Unknown]
  - Pain in extremity [Unknown]
  - Pain [Unknown]
  - Blood pressure fluctuation [Unknown]
